FAERS Safety Report 8052229-1 (Version None)
Quarter: 2012Q1

REPORT INFORMATION
  Report Type: 
  Country: None (occurrence: None)
  Receive Date: 20120111
  Receipt Date: 20120103
  Transmission Date: 20120608
  Serious: Yes (Other)
  Sender: FDA-Public Use
  Company Number: 2012SP000338

PATIENT
  Age: 21 Year
  Sex: Female

DRUGS (2)
  1. ETONOGESTREL (IMPLANT TYPE UNKNOWN) (ETONOGESTREL /01502301/) [Suspect]
     Indication: CONTRACEPTION
     Dosage: SBDE
     Route: 059
     Dates: start: 20110601
  2. FLUOXETINE [Concomitant]

REACTIONS (3)
  - ABORTION SPONTANEOUS [None]
  - MATERNAL EXPOSURE DURING PREGNANCY [None]
  - PREGNANCY WITH IMPLANT CONTRACEPTIVE [None]
